FAERS Safety Report 16478778 (Version 4)
Quarter: 2020Q3

REPORT INFORMATION
  Report Type: Spontaneous
  Country: US (occurrence: US)
  Receive Date: 20190626
  Receipt Date: 20200903
  Transmission Date: 20201102
  Serious: No
  Sender: FDA-Public Use
  Company Number: US-PFIZER INC-2019274558

PATIENT
  Age: 74 Year
  Sex: Female
  Weight: 79.3 kg

DRUGS (5)
  1. IBRANCE [Suspect]
     Active Substance: PALBOCICLIB
     Indication: BREAST CANCER METASTATIC
     Dosage: 100 MG, CYCLIC (100 MG ONCE DAILY 21 DAYS THEN OFF 7 DAYS)
  2. IBRANCE [Suspect]
     Active Substance: PALBOCICLIB
     Indication: BREAST CANCER METASTATIC
     Dosage: 100 MG, CYCLIC[100 MG ONCE DAILY 21 DAYS THEN OFF 7 DAYS]
  3. FASLODEX [Concomitant]
     Active Substance: FULVESTRANT
     Dosage: UNK UNK, MONTHLY [A SHOT ONCE A MONTH AND EACH BUTT CHEEK]
  4. AROMASIN [Concomitant]
     Active Substance: EXEMESTANE
     Dosage: 25 MG, 1X/DAY
     Route: 048
  5. NERLYNX [Concomitant]
     Active Substance: NERATINIB
     Dosage: UNK

REACTIONS (1)
  - Neoplasm progression [Unknown]
